FAERS Safety Report 7593311-2 (Version None)
Quarter: 2011Q3

REPORT INFORMATION
  Report Type: 
  Country: None (occurrence: None)
  Receive Date: 20110706
  Receipt Date: 20090316
  Transmission Date: 20111222
  Serious: Yes (Death, Hospitalization, Other)
  Sender: FDA-Public Use
  Company Number: US-BAYER-200915427NA

PATIENT
  Age: 77 Year
  Sex: Female
  Weight: 88 kg

DRUGS (24)
  1. LASIX [Concomitant]
     Dosage: 20 MG
     Route: 048
     Dates: start: 20040809, end: 20040817
  2. LASIX [Concomitant]
     Dosage: 40 MG
     Route: 042
     Dates: start: 20040819, end: 20040819
  3. INSULIN [Concomitant]
     Dosage: 4 U
     Route: 042
     Dates: start: 20040820, end: 20040820
  4. INSULIN [Concomitant]
     Dosage: 1 U/HR
     Route: 042
     Dates: start: 20040820, end: 20040820
  5. PAPAVERINE [Concomitant]
     Dosage: 240 MG
     Dates: start: 20040820, end: 20040820
  6. TRASYLOL [Suspect]
     Dosage: 200 ML LOADING DOSE
     Route: 042
     Dates: start: 20040820, end: 20040820
  7. ACETYLSALICYLIC ACID SRT [Concomitant]
     Dosage: 81 MG
     Route: 048
     Dates: start: 20040809
  8. GLYBURIDE [Concomitant]
     Dosage: 10 MG, BID PRIOR TO 17-AUG-2004
     Route: 048
  9. LASIX [Concomitant]
     Dosage: 20 MG
     Route: 042
     Dates: start: 20040820, end: 20040820
  10. AVANDAMET [Concomitant]
     Dosage: 1/500 MG PRIOR TO 17-AUG-2004 TO 17-AUG-2004
     Route: 048
  11. ZEMURON [Concomitant]
     Dosage: UNK
     Route: 042
     Dates: start: 20040820, end: 20040820
  12. TRASYLOL [Suspect]
     Indication: CORONARY ARTERY BYPASS
     Dosage: 1 ML, ONCE
     Route: 042
     Dates: start: 20040820, end: 20040820
  13. TRASYLOL [Suspect]
     Dosage: 50ML/HR INFUSION
     Route: 042
     Dates: start: 20040820, end: 20040820
  14. DYNACIRC [Concomitant]
     Dosage: 5 MG PRIOR TO 17-AUG-2004
     Route: 048
  15. LISINOPRIL [Concomitant]
     Dosage: 40 MG PRIOR TO 17-AUG-2004
     Route: 048
  16. GLUCOPHAGE [Concomitant]
     Dosage: 500 MG PRIOR TO 17-AUG-2004
     Route: 048
  17. HEPARIN [Concomitant]
     Dosage: 25000 U
     Route: 048
     Dates: start: 20040817, end: 20040817
  18. HEPARIN [Concomitant]
     Dosage: 2000 U
     Route: 042
     Dates: start: 20040820, end: 20040820
  19. SUFENTA PRESERVATIVE FREE [Concomitant]
     Dosage: UNK
     Route: 042
     Dates: start: 20040820, end: 20040820
  20. NORCURON [Concomitant]
     Dosage: UNK
     Route: 042
     Dates: start: 20040820, end: 20040820
  21. ATENOLOL [Concomitant]
     Dosage: 50 MG
     Route: 048
     Dates: start: 20040817
  22. LIPITOR [Concomitant]
     Dosage: 20 MG
     Route: 048
     Dates: start: 20040818
  23. KEFZOL [Concomitant]
     Dosage: 1 G
     Route: 042
     Dates: start: 20040820, end: 20040820
  24. PROPOFOL [Concomitant]
     Dosage: UNK
     Route: 042
     Dates: start: 20040820, end: 20040820

REACTIONS (10)
  - RENAL FAILURE [None]
  - ANHEDONIA [None]
  - DEATH [None]
  - UNEVALUABLE EVENT [None]
  - FEAR [None]
  - CEREBROVASCULAR ACCIDENT [None]
  - ANXIETY [None]
  - PAIN [None]
  - DEPRESSION [None]
  - INJURY [None]
